FAERS Safety Report 5014176-9 (Version None)
Quarter: 2006Q2

REPORT INFORMATION
  Report Type: 
  Country: None (occurrence: None)
  Receive Date: 20060414
  Receipt Date: 20060109
  Transmission Date: 20061013
  Serious: No
  Sender: FDA-Public Use
  Company Number: 2006SP000123

PATIENT
  Age: 71 Year
  Sex: Male
  Weight: 68.4932 kg

DRUGS (6)
  1. LUNESTA [Suspect]
     Indication: INSOMNIA
     Dosage: 2 MG; HS;ORAL    3 MG/HS/ORAL
     Route: 048
     Dates: start: 20050901, end: 20050901
  2. LUNESTA [Suspect]
     Indication: INSOMNIA
     Dosage: 2 MG; HS;ORAL    3 MG/HS/ORAL
     Route: 048
     Dates: start: 20060101, end: 20060101
  3. ATORVASTATIN CALCIUM [Concomitant]
  4. TOPROL-XL [Concomitant]
  5. ALTACE [Concomitant]
  6. SYNTHROID [Concomitant]

REACTIONS (2)
  - DRUG INEFFECTIVE [None]
  - MIDDLE INSOMNIA [None]
